FAERS Safety Report 6571191-1 (Version None)
Quarter: 2010Q1

REPORT INFORMATION
  Report Type: 
  Country: None (occurrence: None)
  Receive Date: 20100129
  Receipt Date: 20100113
  Transmission Date: 20100710
  Serious: Yes (Hospitalization)
  Sender: FDA-Public Use
  Company Number: 2009AC000282

PATIENT
  Age: 77 Year
  Sex: Female

DRUGS (39)
  1. DIGOXIN [Suspect]
     Dosage: 0.125 MG;QD;PO 0.25 MG;PO
     Route: 048
     Dates: start: 20040101, end: 20080101
  2. DIGOXIN [Suspect]
     Dosage: 0.125 MG;QD;PO 0.25 MG;PO
     Route: 048
     Dates: start: 20080418
  3. DIGOXIN [Suspect]
     Dosage: 0.125 MG;QD;PO 0.25 MG;PO
     Route: 048
     Dates: start: 20080423
  4. LISINOPRIL [Concomitant]
  5. LEVAQUIN [Concomitant]
  6. LORTAB [Concomitant]
  7. ACTOS [Concomitant]
  8. ZESTRIL [Concomitant]
  9. WARFARIN SODIUM [Concomitant]
  10. TOPROL-XL [Concomitant]
  11. DESYREL [Concomitant]
  12. SYNTHROID [Concomitant]
  13. BUSPAR [Concomitant]
  14. DIOVAN [Concomitant]
  15. KLOR-CON [Concomitant]
  16. LASIX [Concomitant]
  17. SYNTHROID [Concomitant]
  18. ALPRAZOLAM [Concomitant]
  19. PROPOX-N [Concomitant]
  20. METOPROLOL TARTRATE [Concomitant]
  21. NIASPAN [Concomitant]
  22. DIOVAN [Concomitant]
  23. PAROXETINE HCL [Concomitant]
  24. TRICOR [Concomitant]
  25. ACTOS [Concomitant]
  26. CEPHALEXIN [Concomitant]
  27. CYCLONBENZAPRINE [Concomitant]
  28. TRAMADOL [Concomitant]
  29. MECLIZINE [Concomitant]
  30. HISTA-VENT [Concomitant]
  31. SULFAMETHOXAZOLE AND TRIMETHOPRIM [Concomitant]
  32. CEFUROXIME [Concomitant]
  33. MAGNESIUM [Concomitant]
  34. NITROFURATOIN [Concomitant]
  35. BUSPIRONE HCL [Concomitant]
  36. LIDODERM [Concomitant]
  37. CENTRUM SILVER [Concomitant]
  38. MAG-TAB [Concomitant]
  39. GEMFIBROZIL [Concomitant]

REACTIONS (13)
  - ABDOMINAL PAIN [None]
  - ASTHENIA [None]
  - BRADYCARDIA [None]
  - DIZZINESS [None]
  - ECONOMIC PROBLEM [None]
  - HEPATIC FUNCTION ABNORMAL [None]
  - HYPONATRAEMIA [None]
  - HYPOVOLAEMIA [None]
  - MULTIPLE INJURIES [None]
  - PYELONEPHRITIS [None]
  - SURGERY [None]
  - THERAPEUTIC AGENT TOXICITY [None]
  - URINARY TRACT INFECTION [None]
